FAERS Safety Report 5056351-3 (Version None)
Quarter: 2006Q3

REPORT INFORMATION
  Report Type: 
  Country: None (occurrence: None)
  Receive Date: 20060717
  Receipt Date: 20060703
  Transmission Date: 20061208
  Serious: Yes (Hospitalization)
  Sender: FDA-Public Use
  Company Number: HQWYE542503JUL06

PATIENT
  Age: 80 Year
  Sex: Female

DRUGS (6)
  1. CORDARONE [Suspect]
     Indication: ATRIAL FLUTTER
     Dosage: 200 MG 1X PER 1 DAY
     Route: 048
     Dates: start: 20060413, end: 20060523
  2. ATACAND [Suspect]
     Indication: ESSENTIAL HYPERTENSION
     Dosage: 8 MG 1X PER 1 DAY
     Route: 048
     Dates: end: 20060520
  3. OMEPRAZOLE [Suspect]
     Dosage: 20 G 1X PER 1 DAY
     Route: 048
     Dates: end: 20060520
  4. PREVISCAN (FLUINDIONE) [Suspect]
     Dosage: 20 MG FREQUENCY UNSPECIFIED
     Route: 048
     Dates: end: 20060522
  5. TENORMIN [Suspect]
     Indication: ESSENTIAL HYPERTENSION
     Dosage: 25 MG 1X PER 1 DAY
     Route: 048
     Dates: end: 20060522
  6. ZOCOR [Suspect]
     Indication: CARDIOVASCULAR EVENT PROPHYLAXIS
     Dosage: 40 MG 1X PER 1 DAY
     Route: 048
     Dates: start: 20040601, end: 20060522

REACTIONS (10)
  - ALANINE AMINOTRANSFERASE INCREASED [None]
  - ALDOLASE INCREASED [None]
  - ALVEOLITIS [None]
  - ASPARTATE AMINOTRANSFERASE INCREASED [None]
  - BLOOD CREATINE PHOSPHOKINASE INCREASED [None]
  - BLOOD LACTATE DEHYDROGENASE INCREASED [None]
  - HYPOXIA [None]
  - LIVER DISORDER [None]
  - MYOSITIS [None]
  - PNEUMONITIS [None]
